FAERS Safety Report 6520147-3 (Version None)
Quarter: 2009Q4

REPORT INFORMATION
  Report Type: 
  Country: None (occurrence: None)
  Receive Date: 20091229
  Receipt Date: 20091221
  Transmission Date: 20100525
  Serious: Yes (Other)
  Sender: FDA-Public Use
  Company Number: US-BAYER-200917758BCC

PATIENT
  Age: 31 Year
  Sex: Female
  Weight: 116 kg

DRUGS (3)
  1. ALEVE [Suspect]
     Indication: BACK PAIN
     Dosage: UNIT DOSE: 220 MG
     Route: 048
     Dates: start: 20080401, end: 20090401
  2. ALEVE-D SINUS + COLD [Suspect]
     Indication: SINUS HEADACHE
     Dosage: UNIT DOSE: 1 DF
     Route: 048
     Dates: start: 20090910
  3. VITAMIN TAB [Concomitant]
     Route: 065

REACTIONS (2)
  - DRUG SCREEN FALSE POSITIVE [None]
  - PREMATURE BABY [None]
